FAERS Safety Report 11227650 (Version 1)
Quarter: 2015Q2

REPORT INFORMATION
  Report Type: Spontaneous
  Country: US (occurrence: None)
  Receive Date: 20150626
  Receipt Date: 20150626
  Transmission Date: 20150821
  Serious: Yes (Disabling)
  Sender: FDA-Public Use
  Company Number: None

PATIENT
  Age: 32 Year
  Sex: Female
  Weight: 58.97 kg

DRUGS (6)
  1. NYSTATIN AND TRIAMCINOLENE ACETO [Suspect]
     Active Substance: NYSTATIN\TRIAMCINOLONE ACETONIDE
     Indication: SKIN FISSURES
     Dosage: APPLY TO AFFECTED AREA APPLIED TO A SURFACE, USUALLY THE SKIN
     Route: 061
     Dates: start: 20150605, end: 20150611
  2. VALACYCLOVIR [Concomitant]
     Active Substance: VALACYCLOVIR HYDROCHLORIDE
  3. NUVARING [Concomitant]
     Active Substance: ETHINYL ESTRADIOL\ETONOGESTREL
  4. MULTI-VITAMIN [Concomitant]
     Active Substance: .ALPHA.-TOCOPHEROL ACETATE, DL-\ASCORBIC ACID\CYANOCOBALAMIN\FLUORIDE ION\FOLIC ACID\NIACIN\PYRIDOXINE\RIBOFLAVIN\THIAMINE\VITAMIN A\VITAMIN D
  5. VITAMIN B12 [Concomitant]
     Active Substance: CYANOCOBALAMIN
  6. LYSINE [Concomitant]
     Active Substance: LYSINE

REACTIONS (7)
  - Skin exfoliation [None]
  - Application site pain [None]
  - Application site discolouration [None]
  - Skin disorder [None]
  - Application site rash [None]
  - Secretion discharge [None]
  - Application site erythema [None]

NARRATIVE: CASE EVENT DATE: 20150601
